FAERS Safety Report 14410186 (Version 1)
Quarter: 2018Q1

REPORT INFORMATION
  Report Type: Spontaneous
  Country: DE (occurrence: DE)
  Receive Date: 20180119
  Receipt Date: 20180119
  Transmission Date: 20180509
  Serious: Yes (Death)
  Sender: FDA-Public Use
  Company Number: DE-WEST-WARD PHARMACEUTICALS CORP.-DE-H14001-18-00320

PATIENT
  Age: 52 Year
  Sex: Male

DRUGS (5)
  1. 5-FLUOROURACIL [Concomitant]
     Active Substance: FLUOROURACIL
     Indication: NEOPLASM PROGRESSION
     Route: 065
  2. CISPLATIN. [Concomitant]
     Active Substance: CISPLATIN
     Indication: LARYNGEAL SQUAMOUS CELL CARCINOMA
     Route: 065
     Dates: start: 201009
  3. TEMSIROLIMUS [Concomitant]
     Active Substance: TEMSIROLIMUS
     Indication: NEOPLASM PROGRESSION
     Route: 065
  4. CISPLATIN. [Concomitant]
     Active Substance: CISPLATIN
     Route: 065
  5. PACLITAXEL. [Suspect]
     Active Substance: PACLITAXEL
     Indication: NEOPLASM PROGRESSION
     Route: 065

REACTIONS (2)
  - Septic shock [Fatal]
  - Pancytopenia [Fatal]
